FAERS Safety Report 11696940 (Version 4)
Quarter: 2016Q1

REPORT INFORMATION
  Report Type: Report from Study
  Country: US (occurrence: US)
  Receive Date: 20151104
  Receipt Date: 20160120
  Transmission Date: 20160525
  Serious: Yes (Death)
  Sender: FDA-Public Use
  Company Number: US-JNJFOC-20151101408

PATIENT
  Sex: Male
  Weight: 74.8 kg

DRUGS (2)
  1. XARELTO [Suspect]
     Active Substance: RIVAROXABAN
     Indication: CEREBROVASCULAR ACCIDENT PROPHYLAXIS
     Dosage: DOSE: 20 (UNSPECIFIED UNIT)
     Route: 048
     Dates: start: 20150130, end: 20151019
  2. XARELTO [Suspect]
     Active Substance: RIVAROXABAN
     Indication: ATRIAL FIBRILLATION
     Dosage: DOSE: 20 (UNSPECIFIED UNIT)
     Route: 048
     Dates: start: 20150130, end: 20151019

REACTIONS (1)
  - Myocardial infarction [Fatal]
